FAERS Safety Report 7767151-5 (Version None)
Quarter: 2011Q3

REPORT INFORMATION
  Report Type: 
  Country: None (occurrence: None)
  Receive Date: 20110922
  Receipt Date: 20100803
  Transmission Date: 20111222
  Serious: No
  Sender: FDA-Public Use
  Company Number: US-ASTRAZENECA-2010SE36315

PATIENT
  Age: 13484 Day
  Sex: Male
  Weight: 124.7 kg

DRUGS (3)
  1. SEROQUEL [Suspect]
     Indication: DEPRESSION
     Route: 048
     Dates: start: 20100701, end: 20100730
  2. SEROQUEL [Suspect]
     Indication: SLEEP DISORDER
     Route: 048
     Dates: start: 20100701, end: 20100730
  3. SEROQUEL [Suspect]
     Indication: ANXIETY
     Route: 048
     Dates: start: 20100701, end: 20100730

REACTIONS (4)
  - INSOMNIA [None]
  - FEELING ABNORMAL [None]
  - DRUG DOSE OMISSION [None]
  - ANXIETY [None]
